FAERS Safety Report 4947806-8 (Version None)
Quarter: 2006Q1

REPORT INFORMATION
  Report Type: 
  Country: None (occurrence: None)
  Receive Date: 20060320
  Receipt Date: 20060308
  Transmission Date: 20060701
  Serious: Yes (Other)
  Sender: FDA-Public Use
  Company Number: FR-GLAXOSMITHKLINE-B0414910A

PATIENT
  Age: 62 Year
  Sex: Male

DRUGS (6)
  1. AVANDIA [Suspect]
     Dosage: 4MG PER DAY
     Route: 048
     Dates: start: 20051206, end: 20060103
  2. TAHOR [Suspect]
     Route: 048
     Dates: end: 20060103
  3. MEDIATOR [Concomitant]
     Dosage: 3UNIT PER DAY
     Route: 048
  4. LERCAN [Concomitant]
     Indication: HYPERTENSION
     Route: 048
  5. BIPRETERAX [Concomitant]
     Indication: HYPERTENSION
     Route: 048
  6. ALLOPURINOL [Concomitant]
     Route: 048

REACTIONS (7)
  - ALANINE AMINOTRANSFERASE INCREASED [None]
  - ASPARTATE AMINOTRANSFERASE INCREASED [None]
  - GAMMA-GLUTAMYLTRANSFERASE INCREASED [None]
  - NAUSEA [None]
  - PROTHROMBIN LEVEL DECREASED [None]
  - SYNCOPE [None]
  - VOMITING [None]
